FAERS Safety Report 9009863 (Version 1)
Quarter: 2013Q1

REPORT INFORMATION
  Report Type: Spontaneous
  Country: US (occurrence: US)
  Receive Date: 20130110
  Receipt Date: 20130110
  Transmission Date: 20140127
  Serious: Yes (Other)
  Sender: FDA-Public Use
  Company Number: US-009507513-1301USA003101

PATIENT
  Sex: Female

DRUGS (6)
  1. MONTELUKAST SODIUM [Suspect]
     Route: 048
  2. SYMBICORT [Suspect]
     Indication: ASTHMA
  3. PREDNISOLONE [Suspect]
     Dosage: 15 MG
  4. NEOCLARITYN [Suspect]
     Dosage: 5 MG
  5. VENTOLIN (ALBUTEROL) [Suspect]
  6. SERETIDE [Suspect]
     Route: 055

REACTIONS (1)
  - Adverse event [Unknown]
